FAERS Safety Report 10085638 (Version 5)
Quarter: 2016Q2

REPORT INFORMATION
  Report Type: Spontaneous
  Country: US (occurrence: US)
  Receive Date: 20140418
  Receipt Date: 20160530
  Transmission Date: 20160815
  Serious: Yes (Hospitalization, Other)
  Sender: FDA-Public Use
  Company Number: US-JNJFOC-20140405652

PATIENT
  Sex: Male
  Weight: 90.72 kg

DRUGS (10)
  1. DURAGESIC [Suspect]
     Active Substance: FENTANYL
     Indication: CANCER PAIN
     Dosage: 1 IN 72 HOURS
     Route: 062
     Dates: start: 20130409, end: 201305
  2. LIDOCAINE CREAM [Concomitant]
     Indication: PAIN
     Route: 065
  3. ACETAMINOPHEN AND CODEINE [Concomitant]
     Active Substance: ACETAMINOPHEN\CODEINE PHOSPHATE
     Indication: PAIN
     Route: 048
     Dates: start: 20130301, end: 20130409
  4. HYDROXYZINE PAMOATE. [Concomitant]
     Active Substance: HYDROXYZINE PAMOATE
     Indication: PRODUCT USED FOR UNKNOWN INDICATION
     Dosage: TAKE ONE CAPSULE BY MOUTH EVERY NIGHT AT BED TIME AS NEEDED
     Route: 048
  5. GABAPENTIN. [Concomitant]
     Active Substance: GABAPENTIN
     Indication: PRODUCT USED FOR UNKNOWN INDICATION
     Dosage: ONE CAPSULE BY MOUTH AT BED TIME
     Route: 048
  6. ALPRAZOLAM. [Concomitant]
     Active Substance: ALPRAZOLAM
     Route: 048
  7. FLUCONAZOLE. [Concomitant]
     Active Substance: FLUCONAZOLE
     Indication: PRODUCT USED FOR UNKNOWN INDICATION
     Dosage: TAKE 2 TABLETS BY MOUTH ON DAY ONE AND THEN 1TABLET EVERY DAY.
     Route: 048
  8. ACETAMINOPHEN AND CODEINE [Concomitant]
     Active Substance: ACETAMINOPHEN\CODEINE PHOSPHATE
     Indication: THROAT CANCER
     Route: 048
     Dates: start: 20130301, end: 20130409
  9. CITALOPRAM [Concomitant]
     Active Substance: CITALOPRAM HYDROBROMIDE
     Indication: PRODUCT USED FOR UNKNOWN INDICATION
     Dosage: 1 TABLET BY MOUTH 1TIME ADAY IN THE MORNING BEFORE NOON
     Route: 048
     Dates: start: 20131101
  10. FLUOXETINE [Concomitant]
     Active Substance: FLUOXETINE HYDROCHLORIDE
     Indication: PRODUCT USED FOR UNKNOWN INDICATION
     Route: 048

REACTIONS (10)
  - Flashback [Recovering/Resolving]
  - Binge drinking [Recovered/Resolved]
  - Drug dependence [Recovering/Resolving]
  - Feeling abnormal [Recovering/Resolving]
  - Insomnia [Recovering/Resolving]
  - Drug dependence [Recovering/Resolving]
  - Alcoholism [Recovering/Resolving]
  - Mental status changes [Recovering/Resolving]
  - Adverse drug reaction [Unknown]
  - Thinking abnormal [Recovering/Resolving]

NARRATIVE: CASE EVENT DATE: 2013
